FAERS Safety Report 20507494 (Version 1)
Quarter: 2022Q1

REPORT INFORMATION
  Report Type: Spontaneous
  Country: US (occurrence: None)
  Receive Date: 20220222
  Receipt Date: 20220222
  Transmission Date: 20220423
  Serious: Yes (unspecified)
  Sender: FDA-Public Use
  Company Number: None

PATIENT
  Age: 20 Year
  Sex: Female
  Weight: 96.82 kg

DRUGS (2)
  1. SUCCINYLCHOLINE [Suspect]
     Active Substance: SUCCINYLCHOLINE
     Indication: Hypotonia
     Route: 042
     Dates: start: 20220216
  2. SUCCINYLCHOLINE [Suspect]
     Active Substance: SUCCINYLCHOLINE

REACTIONS (1)
  - Drug effect less than expected [None]

NARRATIVE: CASE EVENT DATE: 20220216
